FAERS Safety Report 14712041 (Version 1)
Quarter: 2018Q2

REPORT INFORMATION
  Report Type: Spontaneous
  Country: US (occurrence: US)
  Receive Date: 20180404
  Receipt Date: 20180404
  Transmission Date: 20180711
  Serious: No
  Sender: FDA-Public Use
  Company Number: US-SA-2017SA189490

PATIENT
  Age: 56 Year
  Sex: Female

DRUGS (1)
  1. ALLEGRA-D 24 HOUR [Suspect]
     Active Substance: FEXOFENADINE HYDROCHLORIDE\PSEUDOEPHEDRINE HYDROCHLORIDE
     Indication: MULTIPLE ALLERGIES
     Dosage: STRENGTH - 180 MG + 240 MG.
     Route: 048
     Dates: start: 201611

REACTIONS (6)
  - Psychomotor hyperactivity [Unknown]
  - Drug ineffective [Unknown]
  - Dyspnoea [Unknown]
  - Dysphagia [Unknown]
  - Medication residue present [Unknown]
  - Pruritus [Not Recovered/Not Resolved]
